FAERS Safety Report 7118498-7 (Version None)
Quarter: 2010Q4

REPORT INFORMATION
  Report Type: 
  Country: None (occurrence: None)
  Receive Date: 20101123
  Receipt Date: 20091109
  Transmission Date: 20110411
  Serious: No
  Sender: FDA-Public Use
  Company Number: US-MYLANLABS-2009S1019375

PATIENT
  Age: 59 Year
  Sex: Female
  Weight: 43.09 kg

DRUGS (8)
  1. CLONAZEPAM [Suspect]
     Indication: ANXIETY
     Route: 048
     Dates: start: 20091027, end: 20091104
  2. CLONAZEPAM [Suspect]
     Indication: PANIC DISORDER
     Route: 048
     Dates: start: 20091027, end: 20091104
  3. CLONAZEPAM [Suspect]
     Route: 048
     Dates: start: 20091027, end: 20091104
  4. CLONAZEPAM [Suspect]
     Route: 048
     Dates: start: 20091027, end: 20091104
  5. CLOZARIL [Concomitant]
     Indication: SCHIZOPHRENIA
     Route: 048
  6. ABILIFY [Concomitant]
     Indication: SCHIZOPHRENIA
     Route: 048
  7. NEXIUM [Concomitant]
     Indication: GASTROOESOPHAGEAL REFLUX DISEASE
     Route: 048
  8. ASA [Concomitant]
     Route: 048

REACTIONS (4)
  - ANXIETY [None]
  - CHEST PAIN [None]
  - DRUG INEFFECTIVE [None]
  - HEADACHE [None]
